FAERS Safety Report 17252368 (Version 2)
Quarter: 2020Q1

REPORT INFORMATION
  Report Type: Not Available
  Country: US (occurrence: US)
  Receive Date: 20200109
  Receipt Date: 20200214
  Transmission Date: 20200409
  Serious: No
  Sender: FDA-Public Use
  Company Number: US-NEUROCRINE BIOSCIENCES INC.-2019NBI04037

PATIENT
  Age: 54 Year
  Sex: Male

DRUGS (13)
  1. NEXIUM [Concomitant]
     Active Substance: ESOMEPRAZOLE MAGNESIUM
  2. COGENTIN [Concomitant]
     Active Substance: BENZTROPINE MESYLATE
  3. INGREZZA [Suspect]
     Active Substance: VALBENAZINE
     Route: 048
  4. VICTOZA [Concomitant]
     Active Substance: LIRAGLUTIDE
  5. AMBIEN [Concomitant]
     Active Substance: ZOLPIDEM TARTRATE
  6. GLYBURIDE. [Concomitant]
     Active Substance: GLYBURIDE
  7. XANAX [Concomitant]
     Active Substance: ALPRAZOLAM
  8. INGREZZA [Suspect]
     Active Substance: VALBENAZINE
     Indication: TARDIVE DYSKINESIA
     Route: 048
     Dates: start: 20191205, end: 20191212
  9. CYMBALTA [Concomitant]
     Active Substance: DULOXETINE HYDROCHLORIDE
  10. SEROQUEL [Concomitant]
     Active Substance: QUETIAPINE FUMARATE
  11. SIMVASTATIN. [Concomitant]
     Active Substance: SIMVASTATIN
  12. FARXIGA [Concomitant]
     Active Substance: DAPAGLIFLOZIN PROPANEDIOL
  13. INGREZZA [Suspect]
     Active Substance: VALBENAZINE
     Route: 048
     Dates: start: 20191213

REACTIONS (2)
  - Emotional disorder [Recovered/Resolved]
  - Restlessness [Recovered/Resolved]

NARRATIVE: CASE EVENT DATE: 201912
